FAERS Safety Report 22090580 (Version 1)
Quarter: 2023Q1

REPORT INFORMATION
  Report Type: Spontaneous
  Country: US (occurrence: US)
  Receive Date: 20230313
  Receipt Date: 20230313
  Transmission Date: 20230418
  Serious: No
  Sender: FDA-Public Use
  Company Number: US-BRISTOL-MYERS SQUIBB COMPANY-2023-035937

PATIENT
  Age: 65 Year
  Sex: Female

DRUGS (3)
  1. ZEPOSIA [Suspect]
     Active Substance: OZANIMOD HYDROCHLORIDE
     Indication: Multiple sclerosis
     Dosage: FREQ: 1 TIME A DAY FOR 4 DAYS
     Route: 048
     Dates: start: 202302
  2. ZEPOSIA [Suspect]
     Active Substance: OZANIMOD HYDROCHLORIDE
     Dosage: FREQ: 1 TIME A DAY FOR 3 DAYS
     Route: 048
     Dates: start: 202302
  3. ZEPOSIA [Suspect]
     Active Substance: OZANIMOD HYDROCHLORIDE
     Dosage: FREQ: DAY 8
     Route: 048
     Dates: start: 202302

REACTIONS (5)
  - Lip swelling [Recovering/Resolving]
  - Rash [Recovering/Resolving]
  - Blood pressure increased [Recovering/Resolving]
  - Sunburn [Recovering/Resolving]
  - Erythema [Recovering/Resolving]
